FAERS Safety Report 9680383 (Version 2)
Quarter: 2013Q4

REPORT INFORMATION
  Report Type: Spontaneous
  Country: KR (occurrence: KR)
  Receive Date: 20131111
  Receipt Date: 20131111
  Transmission Date: 20140711
  Serious: Yes (Other)
  Sender: FDA-Public Use
  Company Number: KR-ACCORD-020260

PATIENT
  Age: 10 Year
  Sex: Male

DRUGS (5)
  1. MYCOPHENOLATE MOFETIL [Suspect]
     Indication: PROPHYLAXIS AGAINST GRAFT VERSUS HOST DISEASE
  2. TACROLIMUS [Suspect]
     Indication: PROPHYLAXIS AGAINST GRAFT VERSUS HOST DISEASE
     Dosage: FK 506
  3. RITUXIMAB [Concomitant]
  4. FLUDARABINE [Concomitant]
  5. CYCLOSPORIN [Concomitant]

REACTIONS (2)
  - Cystitis haemorrhagic [Recovered/Resolved]
  - BK virus infection [Unknown]
